FAERS Safety Report 12221432 (Version 3)
Quarter: 2016Q2

REPORT INFORMATION
  Report Type: Spontaneous
  Country: US (occurrence: US)
  Receive Date: 20160330
  Receipt Date: 20160404
  Transmission Date: 20160815
  Serious: No
  Sender: FDA-Public Use
  Company Number: US-GLAXOSMITHKLINE-US2016043021

PATIENT
  Age: 26 Year
  Sex: Female

DRUGS (1)
  1. ABREVA [Suspect]
     Active Substance: DOCOSANOL
     Indication: ORAL HERPES
     Dosage: UNK
     Dates: start: 20160312, end: 20160326

REACTIONS (8)
  - Mouth haemorrhage [Unknown]
  - Incorrect drug administration duration [Unknown]
  - Dry mouth [Unknown]
  - Application site erosion [Recovered/Resolved]
  - Drug administration error [Unknown]
  - Oral discomfort [Unknown]
  - Application site dryness [Recovered/Resolved]
  - Application site haemorrhage [Recovered/Resolved]
